FAERS Safety Report 8401504-7 (Version None)
Quarter: 2012Q2

REPORT INFORMATION
  Report Type: 
  Country: None (occurrence: None)
  Receive Date: 20120601
  Receipt Date: 20120528
  Transmission Date: 20120825
  Serious: Yes (Life-Threatening)
  Sender: FDA-Public Use
  Company Number: IT-EISAI INC-E7389-01005-CLI-IT

PATIENT
  Sex: Male
  Weight: 94 kg

DRUGS (16)
  1. PEMETREXED [Suspect]
     Indication: NON-SMALL CELL LUNG CANCER
     Route: 041
     Dates: start: 20100915, end: 20101013
  2. DEXAMETHASONE [Concomitant]
     Route: 048
     Dates: start: 20100914, end: 20100916
  3. AUGMENTIN [Concomitant]
     Indication: SKIN INFECTION
     Route: 048
     Dates: start: 20100827
  4. FOLIC ACID [Concomitant]
     Indication: PROPHYLAXIS
     Route: 048
     Dates: start: 20100708
  5. DEXAMETHASONE [Concomitant]
     Route: 048
     Dates: start: 20100824, end: 20100824
  6. PREGABALIN [Concomitant]
     Indication: PAIN
     Route: 048
     Dates: start: 20100622
  7. HYDROXINE [Concomitant]
     Indication: RASH
     Route: 048
     Dates: start: 20100824
  8. VITAMIN B-12 [Concomitant]
     Route: 048
     Dates: start: 20100922, end: 20100922
  9. EPIRUBICIN HYDROCHLORIDE [Suspect]
     Indication: NON-SMALL CELL LUNG CANCER
     Route: 041
     Dates: start: 20100721, end: 20101013
  10. EPIRUBICIN HYDROCHLORIDE [Suspect]
     Route: 041
     Dates: start: 20101116, end: 20101209
  11. PEMETREXED [Suspect]
     Route: 041
     Dates: start: 20101116, end: 20101209
  12. FENTANYL-100 [Concomitant]
     Indication: PAIN
     Route: 048
     Dates: start: 20100622
  13. FUROSEMIDE [Concomitant]
     Indication: OEDEMA
     Route: 048
     Dates: start: 20100810
  14. DEXAMETHASONE [Concomitant]
     Indication: ADJUVANT THERAPY
     Route: 048
     Dates: start: 20100513, end: 20100707
  15. PEMETREXED [Suspect]
     Route: 041
     Dates: start: 20100721, end: 20100810
  16. DEXAMETHASONE [Concomitant]
     Route: 048
     Dates: start: 20100720, end: 20100721

REACTIONS (2)
  - NEUTROPENIA [None]
  - LEUKOPENIA [None]
